FAERS Safety Report 8070202-4 (Version None)
Quarter: 2012Q1

REPORT INFORMATION
  Report Type: 
  Country: None (occurrence: None)
  Receive Date: 20120125
  Receipt Date: 20120116
  Transmission Date: 20120608
  Serious: Yes (Hospitalization)
  Sender: FDA-Public Use
  Company Number: US-ACTELION-A-US2010-36509

PATIENT

DRUGS (6)
  1. BETA BLOCKING AGENTS [Concomitant]
  2. DIURETICS [Suspect]
  3. LASIX [Concomitant]
  4. ADCIRCA [Concomitant]
  5. TRACLEER [Suspect]
     Indication: PULMONARY ARTERIAL HYPERTENSION
     Dosage: 125 MG, BID
     Route: 048
     Dates: start: 20080808
  6. REVATIO [Concomitant]

REACTIONS (5)
  - FLUID RETENTION [None]
  - FEELING ABNORMAL [None]
  - BLOOD POTASSIUM DECREASED [None]
  - OEDEMA [None]
  - PULMONARY OEDEMA [None]
